FAERS Safety Report 13260061 (Version 1)
Quarter: 2017Q1

REPORT INFORMATION
  Report Type: Spontaneous
  Country: US (occurrence: US)
  Receive Date: 20170222
  Receipt Date: 20170222
  Transmission Date: 20170428
  Serious: No
  Sender: FDA-Public Use
  Company Number: US-TEVA-663471USA

PATIENT
  Sex: Female

DRUGS (1)
  1. AMPHETAMINE W/DEXTROAMPHETAMINE [Suspect]
     Active Substance: AMPHETAMINE SULFATE\DEXTROAMPHETAMINE
     Dates: start: 201605

REACTIONS (5)
  - Drug ineffective [Unknown]
  - Adverse event [Unknown]
  - Insomnia [Unknown]
  - Product substitution issue [Unknown]
  - Burning mouth syndrome [Recovered/Resolved]
